FAERS Safety Report 21876931 (Version 1)
Quarter: 2023Q1

REPORT INFORMATION
  Report Type: Spontaneous
  Country: CN (occurrence: CN)
  Receive Date: 20230118
  Receipt Date: 20230118
  Transmission Date: 20230418
  Serious: Yes (Hospitalization)
  Sender: FDA-Public Use
  Company Number: CN-JNJFOC-20230121740

PATIENT
  Age: 16 Year
  Sex: Female
  Weight: 76 kg

DRUGS (2)
  1. RISPERDAL [Suspect]
     Active Substance: RISPERIDONE
     Indication: Psychiatric symptom
     Dosage: 2 ML IN THE MORNING AND 2.25 ML IN THE EVENING
     Route: 048
     Dates: start: 20220701, end: 20220715
  2. QUETIAPINE FUMARATE [Suspect]
     Active Substance: QUETIAPINE FUMARATE
     Indication: Psychiatric symptom
     Dosage: 200 MG IN THE MORNING, 200 MG IN THE AFTERNOON, AND 400 MG IN THE EVENING
     Route: 048
     Dates: start: 20220701, end: 20220715

REACTIONS (3)
  - Menopause [Recovering/Resolving]
  - Palpitations [Recovering/Resolving]
  - Extrapyramidal disorder [Recovering/Resolving]

NARRATIVE: CASE EVENT DATE: 20220713
